FAERS Safety Report 4520954-2 (Version None)
Quarter: 2004Q4

REPORT INFORMATION
  Report Type: 
  Country: None (occurrence: None)
  Receive Date: 20041206
  Receipt Date: 20041206
  Transmission Date: 20050328
  Serious: Yes (Death)
  Sender: FDA-Public Use
  Company Number: None

PATIENT
  Age: 49 Year
  Sex: Male
  Weight: 51.2565 kg

DRUGS (2)
  1. ULTRACET [Suspect]
     Indication: ABDOMINAL PAIN
     Dosage: 1   4-6 HRS  ORAL
     Route: 048
     Dates: start: 20040621, end: 20040625
  2. LEXAPRO [Suspect]
     Indication: DEPRESSION
     Dosage: 1  DAY   ORAL
     Route: 048
     Dates: start: 20040621, end: 20040625

REACTIONS (4)
  - DRUG TOXICITY [None]
  - MULTIPLE DRUG OVERDOSE ACCIDENTAL [None]
  - MYOCARDIAL INFARCTION [None]
  - POISONING [None]
